FAERS Safety Report 9173500 (Version 1)
Quarter: 2013Q1

REPORT INFORMATION
  Report Type: Spontaneous
  Country: KR (occurrence: None)
  Receive Date: 20130314
  Receipt Date: 20130314
  Transmission Date: 20140127
  Serious: Yes (Life-Threatening, Hospitalization)
  Sender: FDA-Public Use
  Company Number: 2013/056

PATIENT
  Age: 58 Year
  Sex: Male

DRUGS (1)
  1. LEVOFLOXACIN 250 MG [Suspect]
     Indication: ASTHMA
     Route: 048

REACTIONS (11)
  - Anaphylactic reaction [None]
  - Tryptase increased [None]
  - Asthma [None]
  - Haemoglobin increased [None]
  - Platelet count increased [None]
  - Alanine aminotransferase increased [None]
  - Aspartate aminotransferase increased [None]
  - Blood bilirubin increased [None]
  - Bilirubin conjugated increased [None]
  - Gamma-glutamyltransferase increased [None]
  - Blood alkaline phosphatase increased [None]
